FAERS Safety Report 16675040 (Version 2)
Quarter: 2019Q4

REPORT INFORMATION
  Report Type: Spontaneous
  Country: CH (occurrence: CH)
  Receive Date: 20190806
  Receipt Date: 20191029
  Transmission Date: 20200122
  Serious: Yes (Hospitalization, Other)
  Sender: FDA-Public Use
  Company Number: CH-SA-2019SA212369

PATIENT
  Age: 6 Year
  Sex: Male
  Weight: 20 kg

DRUGS (5)
  1. NOVOSEVEN [Concomitant]
     Active Substance: COAGULATION FACTOR VIIA RECOMBINANT HUMAN
     Dosage: UNK
     Dates: start: 20190527, end: 20190701
  2. HEMLIBRA [Suspect]
     Active Substance: EMICIZUMAB-KXWH
     Indication: HAEMOPHILIA A WITH ANTI FACTOR VIII
     Dosage: 60 MG, QW
     Route: 058
     Dates: start: 20190702, end: 20190702
  3. HEMLIBRA [Suspect]
     Active Substance: EMICIZUMAB-KXWH
     Dosage: 60 MG, TOTAL
     Route: 058
     Dates: start: 20190819, end: 20190819
  4. XYZAL [Suspect]
     Active Substance: LEVOCETIRIZINE DIHYDROCHLORIDE
     Indication: SEASONAL ALLERGY
     Dosage: 2 DF, BID (STRENGTH:2.5 MG)
     Route: 048
     Dates: start: 20190701, end: 20190703
  5. FERRIC HYDROXIDE POLYMALTOSE COMPLEX [Suspect]
     Active Substance: IRON POLYMALTOSE
     Indication: IRON DEFICIENCY
     Dosage: 2 DF, BID (STRENGTH: 60 MG)
     Route: 048
     Dates: start: 20190612

REACTIONS (2)
  - Tubulointerstitial nephritis [Recovered/Resolved]
  - Nephritis [Recovered/Resolved]

NARRATIVE: CASE EVENT DATE: 20190705
